FAERS Safety Report 9107568 (Version 3)
Quarter: 2016Q2

REPORT INFORMATION
  Report Type: Report from Study
  Country: RO (occurrence: RO)
  Receive Date: 20130221
  Receipt Date: 20160405
  Transmission Date: 20160815
  Serious: Yes (Other)
  Sender: FDA-Public Use
  Company Number: RO-ROCHE-1192224

PATIENT
  Age: 62 Year
  Sex: Male
  Weight: 110 kg

DRUGS (2)
  1. RITUXIMAB [Suspect]
     Active Substance: RITUXIMAB
     Indication: RHEUMATOID ARTHRITIS
     Route: 042
     Dates: start: 20100601, end: 20121029
  2. METHOTREXATE [Concomitant]
     Active Substance: METHOTREXATE
     Indication: RHEUMATOID ARTHRITIS
     Route: 048
     Dates: start: 20080801

REACTIONS (6)
  - General physical health deterioration [Recovered/Resolved]
  - Flushing [Recovered/Resolved]
  - Dermatitis allergic [Recovered/Resolved]
  - Chills [Recovered/Resolved]
  - Generalised erythema [Recovered/Resolved]
  - Pruritus [Recovered/Resolved]

NARRATIVE: CASE EVENT DATE: 20121029
